FAERS Safety Report 5318799-9 (Version None)
Quarter: 2007Q2

REPORT INFORMATION
  Report Type: 
  Country: None (occurrence: None)
  Receive Date: 20070508
  Receipt Date: 20070504
  Transmission Date: 20071010
  Serious: Yes (Hospitalization, Disabling, Other)
  Sender: FDA-Public Use
  Company Number: GB-BRISTOL-MYERS SQUIBB COMPANY-13770342

PATIENT
  Age: 75 Year
  Sex: Female

DRUGS (4)
  1. MITOMYCIN [Suspect]
     Indication: ANAL CANCER
     Route: 040
  2. FLUOROURACIL [Suspect]
     Indication: ANAL CANCER
     Dosage: DAILY DOSING FOR 4 DAYS DURING THE FIRST AND LAST WEEKS OF RADIOTHERAPY
     Route: 042
  3. CIPROFLOXACIN [Suspect]
     Indication: PROPHYLAXIS
  4. RADIATION THERAPY [Suspect]
     Indication: ANAL CANCER

REACTIONS (10)
  - ARTERIAL THROMBOSIS [None]
  - DIARRHOEA [None]
  - FATIGUE [None]
  - LEG AMPUTATION [None]
  - PERIPHERAL ISCHAEMIA [None]
  - PERIPHERAL VASCULAR DISORDER [None]
  - RADIATION INJURY [None]
  - SKIN REACTION [None]
  - STOMATITIS [None]
  - THERAPEUTIC AGENT TOXICITY [None]
